FAERS Safety Report 4807109-9 (Version None)
Quarter: 2005Q4

REPORT INFORMATION
  Report Type: 
  Country: None (occurrence: None)
  Receive Date: 20051024
  Receipt Date: 20050916
  Transmission Date: 20060501
  Serious: Yes (Hospitalization)
  Sender: FDA-Public Use
  Company Number: JP-JPN-A20052216

PATIENT
  Age: 75 Year
  Sex: Female
  Weight: 50 kg

DRUGS (7)
  1. PAXIL [Suspect]
     Indication: DEPRESSION
     Dosage: 10MG PER DAY
     Route: 048
     Dates: end: 20050922
  2. DEZOLAM [Concomitant]
     Indication: ANXIETY DISORDER
     Dosage: 3TAB PER DAY
     Route: 048
     Dates: start: 20050910
  3. CONIEL [Concomitant]
     Indication: HYPERTENSION
     Dosage: 2TAB PER DAY
     Route: 048
     Dates: start: 20050910
  4. TENORMIN [Concomitant]
     Indication: HYPERTENSION
     Dosage: 1TAB PER DAY
     Route: 048
     Dates: end: 20050905
  5. EBRANTIL [Concomitant]
     Indication: NEUROGENIC BLADDER
     Dosage: 2CAP PER DAY
     Route: 048
     Dates: end: 20050905
  6. LENDORMIN [Concomitant]
     Indication: INSOMNIA
     Dosage: 1TAB PER DAY
     Route: 048
  7. DEPAS [Concomitant]
     Indication: ANXIETY DISORDER
     Dosage: 3TAB PER DAY
     Route: 048

REACTIONS (11)
  - BLOOD CREATINE PHOSPHOKINASE INCREASED [None]
  - BLOOD POTASSIUM DECREASED [None]
  - BLOOD SODIUM DECREASED [None]
  - BLOOD UREA DECREASED [None]
  - DEPRESSED LEVEL OF CONSCIOUSNESS [None]
  - DRUG LEVEL INCREASED [None]
  - HYPOKALAEMIA [None]
  - INAPPROPRIATE ANTIDIURETIC HORMONE SECRETION [None]
  - INCORRECT DOSE ADMINISTERED [None]
  - RED BLOOD CELL COUNT INCREASED [None]
  - WHITE BLOOD CELL COUNT INCREASED [None]
